FAERS Safety Report 14709235 (Version 1)
Quarter: 2018Q2

REPORT INFORMATION
  Report Type: Spontaneous
  Country: US (occurrence: US)
  Receive Date: 20180403
  Receipt Date: 20180403
  Transmission Date: 20180711
  Serious: Yes (Other)
  Sender: FDA-Public Use
  Company Number: US-NOVEN PHARMACEUTICALS, INC.-US2018000189

PATIENT

DRUGS (4)
  1. MINIVELLE [Suspect]
     Active Substance: ESTRADIOL
     Indication: HORMONE REPLACEMENT THERAPY
     Dosage: 0.1 MG, 2/WK
     Route: 062
  2. MINIVELLE [Suspect]
     Active Substance: ESTRADIOL
     Dosage: 0.075 MG, 2/WK
     Route: 062
  3. XANAX [Concomitant]
     Active Substance: ALPRAZOLAM
     Indication: ANXIETY
  4. EFFEXOR [Concomitant]
     Active Substance: VENLAFAXINE HYDROCHLORIDE
     Indication: ANXIETY

REACTIONS (5)
  - Wrong technique in product usage process [Recovered/Resolved]
  - Endometrial cancer [Recovered/Resolved]
  - Hysterectomy [Recovered/Resolved]
  - Product adhesion issue [Recovered/Resolved]
  - Blood oestrogen decreased [Not Recovered/Not Resolved]
